FAERS Safety Report 12804403 (Version 2)
Quarter: 2022Q4

REPORT INFORMATION
  Report Type: Spontaneous
  Country: US (occurrence: US)
  Receive Date: 20161003
  Receipt Date: 20221003
  Transmission Date: 20230113
  Serious: Yes (Death, Other)
  Sender: FDA-Public Use
  Company Number: PHHY2016US132664

PATIENT
  Age: 71 Year
  Sex: Female

DRUGS (4)
  1. TERBINAFINE [Suspect]
     Active Substance: TERBINAFINE
     Indication: Encephalitis
     Dosage: 250 MG, QD
     Route: 048
  2. TERBINAFINE [Suspect]
     Active Substance: TERBINAFINE
     Indication: Scedosporium infection
     Dosage: 250 MG, BID
     Route: 048
  3. VORICONAZOLE [Suspect]
     Active Substance: VORICONAZOLE
     Indication: Scedosporium infection
     Dosage: UNK
     Route: 042
  4. CANCIDAS [Concomitant]
     Active Substance: CASPOFUNGIN ACETATE
     Indication: Scedosporium infection
     Dosage: 5 MG/ML, UNK
     Route: 065

REACTIONS (14)
  - Central nervous system infection [Fatal]
  - Pyrexia [Fatal]
  - Lethargy [Fatal]
  - Somnolence [Fatal]
  - Asthenia [Fatal]
  - Sensory disturbance [Fatal]
  - Disease progression [Fatal]
  - Scedosporium infection [Unknown]
  - Drug resistance [Unknown]
  - Drug ineffective [Unknown]
  - Treatment failure [Unknown]
  - Drug level below therapeutic [Unknown]
  - Overdose [Unknown]
  - Product use in unapproved indication [Unknown]
